FAERS Safety Report 6095044-0 (Version None)
Quarter: 2009Q1

REPORT INFORMATION
  Report Type: 
  Country: None (occurrence: None)
  Receive Date: 20090227
  Receipt Date: 20080107
  Transmission Date: 20090719
  Serious: No
  Sender: FDA-Public Use
  Company Number: A0701683A

PATIENT
  Age: 56 Year
  Sex: Male

DRUGS (1)
  1. LAMICTAL [Suspect]
     Dosage: 100MG TWICE PER DAY
     Route: 048
     Dates: start: 20061101

REACTIONS (6)
  - AMNESIA [None]
  - DEPRESSION [None]
  - DIZZINESS [None]
  - DRUG INEFFECTIVE [None]
  - FEELING ABNORMAL [None]
  - LETHARGY [None]
